FAERS Safety Report 9332482 (Version 1)
Quarter: 2013Q2

REPORT INFORMATION
  Report Type: Report from Study
  Country: AU (occurrence: AU)
  Receive Date: 20130606
  Receipt Date: 20130606
  Transmission Date: 20140414
  Serious: Yes (Hospitalization, Other)
  Sender: FDA-Public Use
  Company Number: AU-JNJFOC-20130601300

PATIENT
  Age: 57 Year
  Sex: Male
  Weight: 61 kg

DRUGS (9)
  1. RIVAROXABAN [Suspect]
     Indication: ATRIAL FIBRILLATION
     Route: 048
     Dates: start: 201210, end: 201212
  2. RIVAROXABAN [Suspect]
     Indication: CEREBROVASCULAR ACCIDENT PROPHYLAXIS
     Route: 048
     Dates: start: 201210, end: 201212
  3. PARACETAMOL [Concomitant]
     Route: 048
  4. FERROGRADUMET [Concomitant]
     Route: 048
  5. VITAMIN C [Concomitant]
     Route: 048
  6. DIGOXIN [Concomitant]
     Route: 048
  7. SODIUM VALPROATE [Concomitant]
     Route: 065
  8. METOPROLOL [Concomitant]
     Route: 048
  9. BACLOFEN [Concomitant]
     Route: 048

REACTIONS (2)
  - Cerebrovascular accident [Unknown]
  - Cerebral haemorrhage [Recovering/Resolving]
